FAERS Safety Report 8376540-X (Version None)
Quarter: 2012Q2

REPORT INFORMATION
  Report Type: 
  Country: None (occurrence: None)
  Receive Date: 20120522
  Receipt Date: 20120511
  Transmission Date: 20120825
  Serious: Yes (Hospitalization)
  Sender: FDA-Public Use
  Company Number: CA-ASTRAZENECA-2012SE13464

PATIENT
  Age: 27759 Day
  Sex: Male

DRUGS (13)
  1. VITALUX [Concomitant]
     Indication: MACULAR DEGENERATION
  2. ASPIRIN [Concomitant]
     Route: 048
     Dates: end: 20120206
  3. FISH OIL [Concomitant]
     Indication: MEDICAL DIET
     Route: 048
  4. AZD6140 [Suspect]
     Route: 048
     Dates: start: 20120218, end: 20120221
  5. DUTASTERIDE [Concomitant]
     Indication: BENIGN PROSTATIC HYPERPLASIA
     Route: 048
  6. COVERYSL [Concomitant]
     Indication: HYPERTENSION
     Route: 048
  7. LIPITOR [Concomitant]
     Indication: HYPERLIPIDAEMIA
     Route: 048
  8. AZD6140 [Suspect]
     Route: 048
     Dates: start: 20120227
  9. AZD6140 [Suspect]
     Indication: CORONARY ARTERY DISEASE
     Route: 048
     Dates: start: 20110623, end: 20120214
  10. ASPIRIN [Concomitant]
     Route: 048
     Dates: start: 20120218
  11. HYDROCHLOROTHIAZIDE [Concomitant]
     Indication: HYPERTENSION
     Route: 048
     Dates: end: 20120221
  12. MULTI-VITAMIN [Concomitant]
     Indication: VITAMIN SUPPLEMENTATION
     Route: 048
  13. TAMSULOSIN HCL [Concomitant]
     Indication: BENIGN PROSTATIC HYPERPLASIA
     Route: 048

REACTIONS (1)
  - BENIGN PROSTATIC HYPERPLASIA [None]
